FAERS Safety Report 6634418-3 (Version None)
Quarter: 2010Q1

REPORT INFORMATION
  Report Type: 
  Country: None (occurrence: None)
  Receive Date: 20100315
  Receipt Date: 20100311
  Transmission Date: 20100710
  Serious: Yes (Hospitalization)
  Sender: FDA-Public Use
  Company Number: CH-ROCHE-682504

PATIENT
  Age: 53 Year
  Sex: Female

DRUGS (2)
  1. BEVACIZUMAB [Suspect]
     Dosage: DAY 1.DATE OF LAST DOSE PRIOR TO SAE: 14 JAN 2010. PERMANENTLY DISCONTINUED.
     Route: 042
     Dates: start: 20080925
  2. TEMOZOLOMIDE [Suspect]
     Dosage: DAY 1 - 7. LAST DOSE PRIOR TO SAE: 20 JAN 2010, TEMPORARILY DISCONTINUED.
     Route: 048
     Dates: start: 20080925

REACTIONS (1)
  - ATRIAL FIBRILLATION [None]
